FAERS Safety Report 9420026 (Version 2)
Quarter: 2013Q3

REPORT INFORMATION
  Report Type: Report from Study
  Country: JP (occurrence: JP)
  Receive Date: 20130725
  Receipt Date: 20130806
  Transmission Date: 20140515
  Serious: Yes (Life-Threatening, Hospitalization)
  Sender: FDA-Public Use
  Company Number: JP-ACTELION-A-CH2013-86204

PATIENT
  Age: 17 Year
  Sex: Female

DRUGS (3)
  1. TRACLEER [Suspect]
     Indication: PULMONARY ARTERIAL HYPERTENSION
     Dosage: UNK
     Route: 048
  2. SILDENAFIL CITRATE [Concomitant]
  3. BERAPROST SODIUM [Concomitant]

REACTIONS (3)
  - Genital haemorrhage [Recovered/Resolved]
  - Transfusion [Unknown]
  - Therapeutic embolisation [Unknown]
